FAERS Safety Report 8905656 (Version 1)
Quarter: 2012Q4

REPORT INFORMATION
  Report Type: 
  Country: US (occurrence: US)
  Receive Date: 20121109
  Receipt Date: 20121109
  Transmission Date: 20130627
  Serious: No
  Sender: FDA-Public Use
  Company Number: US-B.I. PHARMACEUTICALS,INC./RIDGEFIELD-2012-BP-27169BP

PATIENT
  Age: 83 None
  Sex: Female

DRUGS (10)
  1. TRADJENTA [Suspect]
     Indication: DIABETES MELLITUS
     Route: 048
     Dates: start: 20120915
  2. TRADJENTA [Suspect]
     Dosage: 2.5 mg
     Route: 048
     Dates: start: 201210
  3. SYNTHROID [Concomitant]
     Indication: HYPOTHYROIDISM
     Dosage: 150 mcg
     Route: 048
     Dates: start: 1982
  4. COREG [Concomitant]
     Indication: HYPERTENSION
     Dosage: 37.5 mg
     Route: 048
     Dates: start: 2002
  5. MAVIK [Concomitant]
     Indication: HYPERTENSION
     Dosage: 4 mg
     Route: 048
     Dates: start: 2002
  6. HYDRALAZINE [Concomitant]
     Indication: HYPERTENSION
     Dosage: 50 mg
     Route: 048
     Dates: start: 2002
  7. LASIX [Concomitant]
     Indication: CARDIAC FAILURE
     Dates: start: 1997
  8. GLIPIZIDE ER [Concomitant]
     Indication: DIABETES MELLITUS
     Dosage: 10 mg
     Route: 048
     Dates: start: 2002
  9. GLIPIZIDE [Concomitant]
     Indication: DIABETES MELLITUS
     Dosage: 5 mg
     Route: 048
     Dates: start: 2002
  10. WARFARIN [Concomitant]
     Indication: ATRIAL FIBRILLATION
     Route: 048
     Dates: start: 1997

REACTIONS (4)
  - Blood glucose decreased [Unknown]
  - Decreased appetite [Not Recovered/Not Resolved]
  - Abnormal loss of weight [Unknown]
  - Hyperhidrosis [Unknown]
